FAERS Safety Report 13761414 (Version 1)
Quarter: 2017Q3

REPORT INFORMATION
  Report Type: Spontaneous
  Country: GB (occurrence: GB)
  Receive Date: 20170717
  Receipt Date: 20170717
  Transmission Date: 20171127
  Serious: Yes (Death, Other)
  Sender: FDA-Public Use
  Company Number: GB-009507513-1707GBR002524

PATIENT
  Age: 70 Year
  Sex: Male

DRUGS (1)
  1. PEMBROLIZUMAB. [Suspect]
     Active Substance: PEMBROLIZUMAB
     Indication: METASTATIC MALIGNANT MELANOMA

REACTIONS (4)
  - Pneumonitis [Unknown]
  - Hepatotoxicity [Unknown]
  - Rash [Unknown]
  - Death [Fatal]

NARRATIVE: CASE EVENT DATE: 201704
